FAERS Safety Report 6183537-7 (Version None)
Quarter: 2009Q2

REPORT INFORMATION
  Report Type: 
  Country: None (occurrence: None)
  Receive Date: 20090508
  Receipt Date: 20090424
  Transmission Date: 20091009
  Serious: Yes (Death, Other)
  Sender: FDA-Public Use
  Company Number: GB-RANBAXY-2009RR-23717

PATIENT
  Age: 55 Year
  Sex: Male

DRUGS (4)
  1. ASPIRIN [Suspect]
     Dosage: 3.15 G, UNK
     Route: 048
  2. CINNARIZINE [Suspect]
     Dosage: 1.125 G, UNK
     Route: 048
  3. PARACETAMOL [Suspect]
     Dosage: 50 G, UNK
     Route: 048
  4. PARVOLEX [Suspect]
     Route: 042

REACTIONS (5)
  - ACUTE RESPIRATORY DISTRESS SYNDROME [None]
  - DRUG INEFFECTIVE [None]
  - HYPOGLYCAEMIA [None]
  - LACTIC ACIDOSIS [None]
  - OVERDOSE [None]
